FAERS Safety Report 8881920 (Version 1)
Quarter: 2012Q4

REPORT INFORMATION
  Report Type: 
  Country: CA (occurrence: CA)
  Receive Date: 20121102
  Receipt Date: 20121102
  Transmission Date: 20130627
  Serious: Yes (Other)
  Sender: FDA-Public Use
  Company Number: PHHY2009CA19256

PATIENT
  Sex: Female

DRUGS (4)
  1. SANDOSTATIN LAR [Suspect]
     Indication: PANCREATIC NEUROENDOCRINE TUMOUR
     Dosage: 40 mg, every 4 weeks
     Route: 030
     Dates: start: 20050117
  2. SANDOSTATIN LAR [Suspect]
     Dosage: 40 mg, QMO
     Route: 030
  3. SANDOSTATIN LAR [Suspect]
     Dosage: 40 mg, every 4 weeks
     Route: 030
  4. NAPROXEN [Concomitant]

REACTIONS (11)
  - Blood pressure systolic increased [Unknown]
  - Malignant neoplasm progression [Unknown]
  - Hepatic neoplasm [Unknown]
  - Arthritis [Recovering/Resolving]
  - Chills [Unknown]
  - Oedema peripheral [Unknown]
  - Pain in extremity [Not Recovered/Not Resolved]
  - Arthralgia [Recovering/Resolving]
  - Joint swelling [Recovering/Resolving]
  - Asthenia [Unknown]
  - Fatigue [Unknown]
